FAERS Safety Report 7431909-2 (Version None)
Quarter: 2011Q2

REPORT INFORMATION
  Report Type: 
  Country: None (occurrence: None)
  Receive Date: 20110422
  Receipt Date: 20110418
  Transmission Date: 20111010
  Serious: Yes (Other)
  Sender: FDA-Public Use
  Company Number: US-PFIZER INC-2011085076

PATIENT

DRUGS (3)
  1. AUGMENTIN [Interacting]
     Dosage: UNK
  2. TIKOSYN [Interacting]
  3. AMOXICILLIN [Suspect]
     Dosage: UNK

REACTIONS (2)
  - DRUG INTERACTION [None]
  - CARDIAC DISORDER [None]
